FAERS Safety Report 7690785-3 (Version None)
Quarter: 2011Q3

REPORT INFORMATION
  Report Type: 
  Country: None (occurrence: None)
  Receive Date: 20110818
  Receipt Date: 20110812
  Transmission Date: 20111222
  Serious: Yes (Life-Threatening, Other)
  Sender: FDA-Public Use
  Company Number: US-SANOFI-AVENTIS-2011SA044788

PATIENT
  Age: 48 Year
  Sex: Female
  Weight: 89 kg

DRUGS (9)
  1. MICARDIS [Concomitant]
     Dosage: 80/12.5MG
  2. METFORMIN [Concomitant]
  3. SIMVASTATIN [Concomitant]
  4. SPIRONOLACTONE [Concomitant]
  5. MULTAQ [Suspect]
     Route: 048
     Dates: start: 20090929, end: 20110614
  6. ENALAPRIL MALEATE [Concomitant]
  7. DIGOXIN [Concomitant]
     Dates: start: 20080101
  8. LASIX [Concomitant]
  9. CARVEDILOL [Concomitant]
     Dates: start: 20080101

REACTIONS (2)
  - HEPATIC NECROSIS [None]
  - CARDIAC FAILURE CONGESTIVE [None]
